FAERS Safety Report 6305549-2 (Version None)
Quarter: 2009Q3

REPORT INFORMATION
  Report Type: 
  Country: None (occurrence: None)
  Receive Date: 20090807
  Receipt Date: 20090727
  Transmission Date: 20100115
  Serious: Yes (Life-Threatening, Hospitalization, Other)
  Sender: FDA-Public Use
  Company Number: 2009AP001879

PATIENT
  Age: 11 Year
  Sex: Female

DRUGS (2)
  1. LAMOTRIGINE [Suspect]
     Indication: CONVULSION
     Dosage: 0.7 MG/KG; QD
  2. VALPROIC ACID [Suspect]
     Indication: CONVULSION
     Dosage: 200 MG; BID, 600 MG; QD

REACTIONS (20)
  - ACTIVATED PARTIAL THROMBOPLASTIN TIME PROLONGED [None]
  - ALOPECIA [None]
  - BLISTER [None]
  - BLOOD FIBRINOGEN DECREASED [None]
  - DISSEMINATED INTRAVASCULAR COAGULATION [None]
  - DRUG ERUPTION [None]
  - DRUG HYPERSENSITIVITY [None]
  - DRUG INTERACTION [None]
  - DRUG TOXICITY [None]
  - HYPERNATRAEMIA [None]
  - INTERNATIONAL NORMALISED RATIO INCREASED [None]
  - MULTI-ORGAN FAILURE [None]
  - PYREXIA [None]
  - RASH MACULO-PAPULAR [None]
  - RENAL FAILURE [None]
  - RHABDOMYOLYSIS [None]
  - SHOCK [None]
  - SOMNOLENCE [None]
  - TOXIC SHOCK SYNDROME [None]
  - TROPONIN T INCREASED [None]
